FAERS Safety Report 8605147-1 (Version None)
Quarter: 2012Q3

REPORT INFORMATION
  Report Type: 
  Country: None (occurrence: None)
  Receive Date: 20120820
  Receipt Date: 20120816
  Transmission Date: 20120928
  Serious: Yes (Other)
  Sender: FDA-Public Use
  Company Number: US-PFIZER INC-2012194765

PATIENT
  Age: 84 Year
  Sex: Female

DRUGS (7)
  1. CRESTOR [Concomitant]
     Dosage: UNK
  2. NORVASC [Suspect]
     Dosage: 10 MG, 1X/DAY
  3. HYDROCHLOROTHIAZIDE [Concomitant]
     Dosage: UNK
  4. ATACAND [Concomitant]
     Dosage: UNK
  5. TOPROL-XL [Concomitant]
     Dosage: UNK
  6. ASPIRIN [Concomitant]
     Dosage: UNK
  7. PROTONIX [Suspect]
     Dosage: 40 MG, 1X/DAY

REACTIONS (1)
  - DEAFNESS [None]
